FAERS Safety Report 8523916-3 (Version None)
Quarter: 2012Q3

REPORT INFORMATION
  Report Type: 
  Country: None (occurrence: None)
  Receive Date: 20120720
  Receipt Date: 20120719
  Transmission Date: 20120928
  Serious: Yes (Other)
  Sender: FDA-Public Use
  Company Number: BR-BAYER-2012-072246

PATIENT
  Age: 46 Year
  Sex: Female
  Weight: 79 kg

DRUGS (3)
  1. ESTRADIOL VALERATE/DIENOGEST [Suspect]
     Indication: CONTRACEPTION
     Dosage: 1 DF, QD
     Route: 048
     Dates: start: 20120621
  2. ALPRAZOLAM [Concomitant]
     Indication: ANXIETY
     Dosage: 1 DF, QD
     Route: 048
  3. ESTRADIOL (VIVELLE-DOT) [Suspect]
     Indication: CONTRACEPTION
     Dosage: UNK
     Route: 030
     Dates: start: 20060101

REACTIONS (1)
  - HEADACHE [None]
